FAERS Safety Report 5334111-3 (Version None)
Quarter: 2007Q2

REPORT INFORMATION
  Report Type: 
  Country: None (occurrence: None)
  Receive Date: 20070523
  Receipt Date: 20070523
  Transmission Date: 20071010
  Serious: Yes (Other)
  Sender: FDA-Public Use
  Company Number: None

PATIENT

DRUGS (1)
  1. PLATELETS, PHERESIS, LEUKOCYTES REDUCED (7 DAY) [Suspect]
     Dosage: SEE CHART
     Dates: start: 20061001, end: 20070509

REACTIONS (1)
  - PHARMACEUTICAL PRODUCT COMPLAINT [None]
